FAERS Safety Report 7766949-7 (Version None)
Quarter: 2011Q3

REPORT INFORMATION
  Report Type: 
  Country: None (occurrence: None)
  Receive Date: 20110922
  Receipt Date: 20110915
  Transmission Date: 20111222
  Serious: Yes (Death)
  Sender: FDA-Public Use
  Company Number: US-CELGENEUS-087-50794-11092016

PATIENT
  Sex: Male

DRUGS (6)
  1. VIDAZA [Suspect]
     Dosage: 75 MILLIGRAM/SQ. METER
     Route: 058
     Dates: start: 20110509, end: 20110907
  2. MAXIPIME [Concomitant]
     Dosage: 4 GRAM
     Route: 041
     Dates: start: 20110905, end: 20110907
  3. FUNGUARD [Concomitant]
     Dosage: 150 MILLIGRAM
     Route: 041
     Dates: start: 20110905, end: 20110907
  4. CIPROFLOXACIN [Concomitant]
     Dosage: 600 MILLIGRAM
     Route: 041
     Dates: start: 20110908, end: 20110911
  5. MEROPENEM [Concomitant]
     Dosage: 2 GRAM
     Route: 041
     Dates: start: 20110908, end: 20110912
  6. BACTRIM [Concomitant]
     Dosage: 30 MILLILITER
     Route: 041
     Dates: start: 20110908, end: 20110912

REACTIONS (1)
  - PNEUMONIA [None]
